FAERS Safety Report 23486884 (Version 1)
Quarter: 2024Q1

REPORT INFORMATION
  Report Type: Spontaneous
  Country: KR (occurrence: KR)
  Receive Date: 20240206
  Receipt Date: 20240206
  Transmission Date: 20240410
  Serious: Yes (Life-Threatening, Hospitalization, Other)
  Sender: FDA-Public Use
  Company Number: KR-JAZZ PHARMACEUTICALS-2023-KR-020328

PATIENT
  Age: 55 Year
  Sex: Male

DRUGS (14)
  1. ASPARAGINASE [Suspect]
     Active Substance: ASPARAGINASE
     Indication: T-cell type acute leukaemia
     Dosage: UNK
  2. VINCRISTINE [Suspect]
     Active Substance: VINCRISTINE
     Indication: T-cell type acute leukaemia
     Dosage: UNK
  3. PREDNISOLONE [Suspect]
     Active Substance: PREDNISOLONE
     Indication: T-cell type acute leukaemia
     Dosage: UNK
  4. DAUNORUBICIN [Suspect]
     Active Substance: DAUNORUBICIN
     Indication: T-cell type acute leukaemia
     Dosage: UNK
  5. VENETOCLAX [Concomitant]
     Active Substance: VENETOCLAX
     Dosage: 10 MILLIGRAM, DAY 1
  6. VENETOCLAX [Concomitant]
     Active Substance: VENETOCLAX
     Dosage: 20 MILLIGRAM, DAY 2
  7. VENETOCLAX [Concomitant]
     Active Substance: VENETOCLAX
     Dosage: 30 MILLIGRAM, DAY 3
  8. VENETOCLAX [Concomitant]
     Active Substance: VENETOCLAX
     Dosage: 100 MILLIGRAM, DAY 4
  9. POSACONAZOLE [Concomitant]
     Active Substance: POSACONAZOLE
     Dosage: UNK
  10. DECITABINE [Concomitant]
     Active Substance: DECITABINE
     Dosage: 20 MILLIGRAM/SQ. METER, MIXED WITH NORMAL SALINE, 150 ML FOR 5 D
  11. COLISTIN [Concomitant]
     Active Substance: COLISTIN
     Indication: Klebsiella infection
     Dosage: UNK
  12. MEROPENEM [Concomitant]
     Active Substance: MEROPENEM
     Indication: Klebsiella infection
     Dosage: UNK
  13. CIPROFLOXACIN [Concomitant]
     Active Substance: CIPROFLOXACIN
     Indication: Klebsiella infection
     Dosage: UNK
  14. LEVETIRACETAM [Concomitant]
     Active Substance: LEVETIRACETAM
     Indication: Epilepsy
     Dosage: UNK

REACTIONS (2)
  - Septic shock [Recovered/Resolved]
  - Klebsiella bacteraemia [Unknown]
